FAERS Safety Report 15051813 (Version 1)
Quarter: 2018Q2

REPORT INFORMATION
  Report Type: Spontaneous
  Country: US (occurrence: US)
  Receive Date: 20180622
  Receipt Date: 20180622
  Transmission Date: 20180711
  Serious: Yes (Other)
  Sender: FDA-Public Use
  Company Number: US-AMGEN-USASP2011018535

PATIENT
  Age: 75 Year
  Sex: Male
  Weight: 62.59 kg

DRUGS (5)
  1. TAXOL [Concomitant]
     Active Substance: PACLITAXEL
  2. XGEVA [Suspect]
     Active Substance: DENOSUMAB
     Indication: METASTASES TO BONE
     Dosage: 120 MG, Q4WK
     Route: 058
     Dates: start: 20110324, end: 2011
  3. VITAMIN D                          /00107901/ [Concomitant]
     Active Substance: ERGOCALCIFEROL
  4. CARBOPLATIN. [Concomitant]
     Active Substance: CARBOPLATIN
  5. CALCIUM [Concomitant]
     Active Substance: CALCIUM
     Dosage: UNK UNK, BID
     Route: 048

REACTIONS (1)
  - Hypocalcaemia [Recovered/Resolved]

NARRATIVE: CASE EVENT DATE: 20110328
